FAERS Safety Report 11641008 (Version 1)
Quarter: 2015Q4

REPORT INFORMATION
  Report Type: Spontaneous
  Country: US (occurrence: None)
  Receive Date: 20151016
  Receipt Date: 20151016
  Transmission Date: 20160304
  Serious: Yes (Death)
  Sender: FDA-Public Use
  Company Number: None

PATIENT
  Age: 55 Year
  Sex: Male

DRUGS (1)
  1. CAPECITABINE 500 MG TEVA [Suspect]
     Active Substance: CAPECITABINE
     Indication: ENDOCRINE NEOPLASM MALIGNANT
     Route: 048
     Dates: start: 20150812

REACTIONS (1)
  - Death [None]

NARRATIVE: CASE EVENT DATE: 20151012
